FAERS Safety Report 4359727-2 (Version None)
Quarter: 2004Q2

REPORT INFORMATION
  Report Type: 
  Country: None (occurrence: None)
  Receive Date: 20040518
  Receipt Date: 20040507
  Transmission Date: 20050107
  Serious: Yes (Other)
  Sender: FDA-Public Use
  Company Number: AT-BRISTOL-MYERS SQUIBB COMPANY-12583936

PATIENT
  Age: 82 Year
  Sex: Female

DRUGS (9)
  1. CARBOPLATIN [Suspect]
     Indication: OVARIAN CANCER
     Dosage: 1ST CYCLE - 17JAN03
     Route: 042
     Dates: start: 20030207, end: 20030207
  2. PACLITAXEL [Suspect]
     Indication: OVARIAN CANCER
     Dosage: 1ST CYCLE- 17JAN03
     Route: 042
     Dates: start: 20030207, end: 20030207
  3. UROSIN [Concomitant]
     Dates: start: 19990701
  4. TEBOFORTAN [Concomitant]
     Dates: start: 20000101
  5. DEXAMETHASONE [Concomitant]
     Dates: start: 20030206
  6. FORTECORTIN [Concomitant]
     Dates: start: 20030207
  7. DIBONDRIN [Concomitant]
     Dates: start: 20030207
  8. ULSAL [Concomitant]
     Dates: start: 20030207
  9. NAVOBAN [Concomitant]
     Dates: start: 20030207

REACTIONS (3)
  - ANOREXIA [None]
  - LEUKOPENIA [None]
  - NEUTROPENIA [None]
